FAERS Safety Report 7867859 (Version 5)
Quarter: 2013Q4

REPORT INFORMATION
  Report Type: Spontaneous
  Country: US (occurrence: US)
  Receive Date: 20110323
  Receipt Date: 20131025
  Transmission Date: 20140711
  Serious: Yes (Hospitalization, Other)
  Sender: FDA-Public Use
  Company Number: US-US-EMD SERONO, INC.-7048246

PATIENT
  Age: 62 Year
  Sex: Male
  Weight: 75 kg

DRUGS (3)
  1. REBIF [Suspect]
     Indication: MULTIPLE SCLEROSIS
     Route: 058
     Dates: start: 20070319
  2. REBIF [Suspect]
     Route: 058
  3. BOTOX [Concomitant]
     Indication: BLADDER DISORDER

REACTIONS (4)
  - Clostridium difficile infection [Unknown]
  - Gastric disorder [Unknown]
  - Bronchiectasis [Unknown]
  - Multiple sclerosis [Unknown]
